FAERS Safety Report 6936949-5 (Version None)
Quarter: 2010Q3

REPORT INFORMATION
  Report Type: 
  Country: None (occurrence: None)
  Receive Date: 20100823
  Receipt Date: 20100817
  Transmission Date: 20110219
  Serious: Yes (Death, Hospitalization)
  Sender: FDA-Public Use
  Company Number: FR-WYE-G02977409

PATIENT
  Sex: Female

DRUGS (9)
  1. EFFEXOR XR [Suspect]
     Indication: DEPRESSION
     Dosage: 225 MG TOTAL DAILY
     Route: 048
  2. PROFENID [Suspect]
     Indication: MIGRAINE
     Route: 042
     Dates: start: 20081102, end: 20081104
  3. PERFALGAN [Suspect]
     Indication: MIGRAINE
     Dosage: 4 G TOTAL DAILY
     Route: 042
     Dates: start: 20081102, end: 20081104
  4. TRIMEPRAZINE TAB [Concomitant]
     Dosage: UNKNOWN
     Route: 048
  5. AVLOCARDYL [Suspect]
     Route: 048
     Dates: start: 20081015, end: 20081104
  6. INDORAMIN [Suspect]
     Indication: MIGRAINE
     Dosage: 2 TABLETS TOTAL DAILY
     Route: 048
     Dates: start: 20081015, end: 20081104
  7. TERCIAN [Concomitant]
     Dosage: 75 MG TOTAL DAILY
     Route: 048
  8. ACUPAN [Suspect]
     Indication: MIGRAINE
     Dosage: 120 MG TOTAL DAILY
     Route: 042
     Dates: start: 20081102, end: 20081104
  9. LIORESAL [Suspect]
     Indication: MIGRAINE
     Route: 048
     Dates: start: 20081025, end: 20081104

REACTIONS (5)
  - ANAEMIA [None]
  - CARDIAC ARREST [None]
  - CONDITION AGGRAVATED [None]
  - MALAISE [None]
  - MIGRAINE [None]
